FAERS Safety Report 4392517-3 (Version None)
Quarter: 2004Q3

REPORT INFORMATION
  Report Type: 
  Country: None (occurrence: None)
  Receive Date: 20040702
  Receipt Date: 20040622
  Transmission Date: 20050211
  Serious: Yes (Life-Threatening)
  Sender: FDA-Public Use
  Company Number: 2004-117731-NL

PATIENT
  Age: 31 Year
  Sex: Female

DRUGS (2)
  1. MIRTAZAPINE [Suspect]
     Indication: DEPRESSION
     Dates: start: 20020501, end: 20021003
  2. FLUPENTIXOL DECANOATE [Suspect]
     Indication: SCHIZOPHRENIA
     Dosage: 80 MG/DF INTRAMUSCULAR/ORAL
     Route: 030
     Dates: start: 20020822, end: 20021003

REACTIONS (4)
  - CARDIAC ARREST [None]
  - CONVULSION [None]
  - EXTRASYSTOLES [None]
  - VENTRICULAR FIBRILLATION [None]
